FAERS Safety Report 6219134-4 (Version None)
Quarter: 2009Q2

REPORT INFORMATION
  Report Type: 
  Country: None (occurrence: None)
  Receive Date: 20090605
  Receipt Date: 20090605
  Transmission Date: 20091009
  Serious: Yes (Other)
  Sender: FDA-Public Use
  Company Number: None

PATIENT
  Age: 70 Year
  Sex: Male
  Weight: 108 kg

DRUGS (2)
  1. VENLAFAXINE HCL [Suspect]
     Indication: POST-TRAUMATIC STRESS DISORDER
     Dosage: 225 MG AM PO
     Route: 048
     Dates: start: 20090309, end: 20090601
  2. VENLAFAXINE HCL [Suspect]
     Indication: POST-TRAUMATIC STRESS DISORDER
     Dosage: 150 MG AM PO
     Route: 048
     Dates: start: 20090309, end: 20090601

REACTIONS (4)
  - AGITATION [None]
  - DEPRESSION [None]
  - INSOMNIA [None]
  - IRRITABILITY [None]
